FAERS Safety Report 20343976 (Version 1)
Quarter: 2022Q1

REPORT INFORMATION
  Report Type: Spontaneous
  Country: US (occurrence: US)
  Receive Date: 20220118
  Receipt Date: 20220118
  Transmission Date: 20220423
  Serious: Yes (Death)
  Sender: FDA-Public Use
  Company Number: US-GW PHARMA-202201USGW00069

PATIENT

DRUGS (1)
  1. EPIDIOLEX [Suspect]
     Active Substance: CANNABIDIOL
     Indication: Infantile spasms
     Dosage: 100 MILLIGRAM
     Route: 048
     Dates: start: 20210128

REACTIONS (1)
  - Death [Fatal]

NARRATIVE: CASE EVENT DATE: 20211229
